FAERS Safety Report 11258362 (Version 1)
Quarter: 2015Q3

REPORT INFORMATION
  Report Type: Spontaneous
  Country: US (occurrence: None)
  Receive Date: 20150709
  Receipt Date: 20150709
  Transmission Date: 20151125
  Serious: Yes (Hospitalization)
  Sender: FDA-Public Use
  Company Number: None

PATIENT
  Age: 44 Year
  Sex: Female
  Weight: 70.3 kg

DRUGS (2)
  1. CARBOPLATIN. [Suspect]
     Active Substance: CARBOPLATIN
     Dates: end: 20150617
  2. TAXOL [Suspect]
     Active Substance: PACLITAXEL
     Dates: end: 20150617

REACTIONS (5)
  - Fatigue [None]
  - Anaemia [None]
  - Thrombocytopenia [None]
  - Pulmonary embolism [None]
  - Back pain [None]

NARRATIVE: CASE EVENT DATE: 20150702
